FAERS Safety Report 7385969-8 (Version None)
Quarter: 2011Q1

REPORT INFORMATION
  Report Type: 
  Country: None (occurrence: None)
  Receive Date: 20110331
  Receipt Date: 20110328
  Transmission Date: 20110831
  Serious: Yes (Other)
  Sender: FDA-Public Use
  Company Number: US-SHIRE-SPV1-2011-00494

PATIENT
  Age: 18 Year
  Sex: Male

DRUGS (2)
  1. VYVANSE [Suspect]
     Dosage: 50 MG, 1X/DAY:QD
     Route: 048
     Dates: start: 20110312, end: 20110325
  2. VYVANSE [Suspect]
     Indication: ATTENTION DEFICIT/HYPERACTIVITY DISORDER
     Dosage: 30 MG, 1X/DAY:QD
     Route: 048
     Dates: start: 20110228, end: 20110311

REACTIONS (4)
  - SUICIDAL IDEATION [None]
  - FEELING ABNORMAL [None]
  - MALAISE [None]
  - DRUG INEFFECTIVE [None]
